FAERS Safety Report 5067420-6 (Version None)
Quarter: 2006Q3

REPORT INFORMATION
  Report Type: 
  Country: None (occurrence: None)
  Receive Date: 20060802
  Receipt Date: 20060724
  Transmission Date: 20061208
  Serious: Yes (Hospitalization, Disabling, Other)
  Sender: FDA-Public Use
  Company Number: FR-JNJFOC-20050204113

PATIENT
  Age: 24 Year
  Sex: Female

DRUGS (6)
  1. REMICADE [Suspect]
     Route: 042
  2. REMICADE [Suspect]
     Route: 042
  3. REMICADE [Suspect]
     Indication: PSORIATIC ARTHROPATHY
     Route: 042
  4. METHOTREXATE [Concomitant]
     Indication: PSORIATIC ARTHROPATHY
     Route: 065
  5. SULFASALAZINE [Concomitant]
     Route: 065
  6. INSULIN MIXTARD [Concomitant]
     Indication: DIABETES MELLITUS INSULIN-DEPENDENT
     Dosage: 25/20/25 (15 U THREE TIMES DAILY)
     Route: 065

REACTIONS (4)
  - ABSCESS [None]
  - ANGIONEUROTIC OEDEMA [None]
  - SEPSIS [None]
  - TENDONITIS [None]
